FAERS Safety Report 9157526 (Version 2)
Quarter: 2013Q1

REPORT INFORMATION
  Report Type: Spontaneous
  Country: US (occurrence: US)
  Receive Date: 20130312
  Receipt Date: 20130320
  Transmission Date: 20140127
  Serious: Yes (Other)
  Sender: FDA-Public Use
  Company Number: PHEH2013US005759

PATIENT
  Age: 52 Year
  Sex: Female

DRUGS (15)
  1. GILENYA [Suspect]
     Indication: MULTIPLE SCLEROSIS
     Dosage: 0.5 MG, QD
     Route: 048
     Dates: start: 20110725
  2. AMPYRA [Concomitant]
  3. LOSARTAN/HCT [Concomitant]
  4. SIMVASTATIN [Concomitant]
  5. ZOLPIDEM [Concomitant]
  6. METFORMIN [Concomitant]
  7. LANTUS [Concomitant]
  8. SYMLIN [Concomitant]
  9. NOVOLOG [Concomitant]
  10. BACLOFEN [Concomitant]
  11. GABAPENTIN [Concomitant]
  12. MVI [Concomitant]
  13. MAGNESIUM [Concomitant]
  14. VITAMIN B12 [Concomitant]
  15. CALCIUM + VITAMIN D [Concomitant]

REACTIONS (1)
  - Thyroid neoplasm [Recovered/Resolved]
